FAERS Safety Report 20772766 (Version 2)
Quarter: 2022Q2

REPORT INFORMATION
  Report Type: Other
  Country: US (occurrence: None)
  Receive Date: 20220502
  Receipt Date: 20220503
  Transmission Date: 20220721
  Serious: Yes (Other)
  Sender: FDA-Public Use
  Company Number: US-ROCHE-3081315

PATIENT
  Sex: Male
  Weight: 59.020 kg

DRUGS (3)
  1. OCREVUS [Suspect]
     Active Substance: OCRELIZUMAB
     Indication: Primary progressive multiple sclerosis
     Dosage: (PRESCRIBED AS INFUSE 300 MG ON DAY 1 AND 15 THEN 600 MG EVERY 6 MONTHS)?DATE OF TREATMENT: 15/MAR/2
     Route: 042
     Dates: start: 20190412
  2. ALPRAZOLAM [Concomitant]
     Active Substance: ALPRAZOLAM
  3. BACLOFEN [Concomitant]
     Active Substance: BACLOFEN

REACTIONS (4)
  - Urinary tract infection [Recovered/Resolved]
  - Multiple sclerosis relapse [Recovered/Resolved]
  - Aspiration [Not Recovered/Not Resolved]
  - Wound [Not Recovered/Not Resolved]
